FAERS Safety Report 10016092 (Version 2)
Quarter: 2014Q2

REPORT INFORMATION
  Report Type: Spontaneous
  Country: FR (occurrence: FR)
  Receive Date: 20140317
  Receipt Date: 20140409
  Transmission Date: 20141212
  Serious: Yes (Other)
  Sender: FDA-Public Use
  Company Number: FR-ABBVIE-14P-056-1211670-00

PATIENT
  Age: 52 Year
  Sex: Female
  Weight: 66 kg

DRUGS (2)
  1. HUMIRA [Suspect]
     Indication: CROHN^S DISEASE
     Dates: start: 201307, end: 20140226
  2. HYDROXOCOBALAMIN [Suspect]
     Indication: MICROCYTIC ANAEMIA
     Dates: start: 201401, end: 201402

REACTIONS (3)
  - Thrombocytosis [Not Recovered/Not Resolved]
  - Essential thrombocythaemia [Unknown]
  - Bone marrow disorder [Unknown]
